FAERS Safety Report 22820424 (Version 2)
Quarter: 2024Q1

REPORT INFORMATION
  Report Type: Spontaneous
  Country: US (occurrence: US)
  Receive Date: 20230814
  Receipt Date: 20240322
  Transmission Date: 20240410
  Serious: Yes (Other)
  Sender: FDA-Public Use
  Company Number: US-PFIZER INC-PV202300139029

PATIENT
  Age: 73 Year
  Sex: Female

DRUGS (2)
  1. IBRANCE [Suspect]
     Active Substance: PALBOCICLIB
     Dosage: TAKE ONE CAPSULE (75 MG) PO ONCE DAILY X 21 DAYS, 7 DAYS OFF
     Route: 048
     Dates: start: 20220916
  2. EFFEXOR XR [Concomitant]
     Active Substance: VENLAFAXINE HYDROCHLORIDE
     Dosage: EFFEXOR XR (CAPSULE SR 24 HR)-1 (150 MG) CAPSULE SR 24 HR. ORAL DAILY
     Route: 048
     Dates: start: 2014

REACTIONS (1)
  - Myelosuppression [Unknown]
